FAERS Safety Report 6840897-9 (Version None)
Quarter: 2010Q3

REPORT INFORMATION
  Report Type: 
  Country: None (occurrence: None)
  Receive Date: 20100714
  Receipt Date: 20070615
  Transmission Date: 20110219
  Serious: No
  Sender: FDA-Public Use
  Company Number: US-PFIZER INC-2007051340

PATIENT
  Sex: Male
  Weight: 63.636 kg

DRUGS (7)
  1. CHANTIX [Suspect]
     Indication: SMOKING CESSATION THERAPY
     Dates: start: 20070612
  2. ZYPREXA [Concomitant]
  3. TRIFLUOPERAZINE [Concomitant]
  4. ATIVAN [Concomitant]
  5. ZETIA [Concomitant]
  6. VITAMIN C [Concomitant]
  7. LORAZEPAM [Concomitant]

REACTIONS (3)
  - ERUCTATION [None]
  - NAUSEA [None]
  - SOMNOLENCE [None]
